FAERS Safety Report 15814875 (Version 2)
Quarter: 2019Q1

REPORT INFORMATION
  Report Type: Spontaneous
  Country: ES (occurrence: ES)
  Receive Date: 20190111
  Receipt Date: 20190216
  Transmission Date: 20190417
  Serious: Yes (Death, Other)
  Sender: FDA-Public Use
  Company Number: ES-ACCORD-101785

PATIENT
  Age: 21 Year
  Sex: Female

DRUGS (4)
  1. HYDROCORTISONE. [Concomitant]
     Active Substance: HYDROCORTISONE
     Indication: HYPERADRENALISM
     Route: 048
     Dates: start: 20180227, end: 20180302
  2. CITALOPRAM [Interacting]
     Active Substance: CITALOPRAM HYDROBROMIDE
     Indication: DEPRESSION
     Route: 048
     Dates: start: 20170626, end: 20180227
  3. TRAZODONE [Suspect]
     Active Substance: TRAZODONE HYDROCHLORIDE
     Indication: DEPRESSION
     Route: 048
     Dates: start: 20170807, end: 20180227
  4. DEXAMETHASONE. [Interacting]
     Active Substance: DEXAMETHASONE
     Indication: HYPERADRENALISM
     Route: 048
     Dates: start: 2016, end: 20180227

REACTIONS (2)
  - Drug interaction [Unknown]
  - Cushing^s syndrome [Fatal]

NARRATIVE: CASE EVENT DATE: 20180227
